FAERS Safety Report 23709774 (Version 3)
Quarter: 2025Q1

REPORT INFORMATION
  Report Type: Report from Study
  Country: CA (occurrence: CA)
  Receive Date: 20240405
  Receipt Date: 20250213
  Transmission Date: 20250409
  Serious: Yes (Hospitalization, Other)
  Sender: CELLTRION
  Company Number: CA-CELLTRION INC.-2023CA014580

PATIENT

DRUGS (10)
  1. ADALIMUMAB-AATY [Suspect]
     Active Substance: ADALIMUMAB-AATY
     Indication: Crohn^s disease
     Dosage: 40 MILLIGRAM, WEEKS-WEEKLY, 40MG / 0.4ML AI AUTOINJECTOR/1 EVERY 1 WEEK
     Route: 058
     Dates: start: 20230516
  2. ADALIMUMAB-AATY [Suspect]
     Active Substance: ADALIMUMAB-AATY
     Dosage: 40 MILLIGRAM, WEEKS-WEEKLY, 40MG / 0.4ML AI AUTOINJECTOR/1 EVERY 1 WEEK
     Route: 058
     Dates: start: 20230715
  3. ADALIMUMAB-AATY [Suspect]
     Active Substance: ADALIMUMAB-AATY
     Dosage: 40 MG EVERY WEEK/ 1 EVERY 1 WEEK
     Route: 058
     Dates: start: 20240315
  4. CODEINE [Concomitant]
     Active Substance: CODEINE
  5. TYLENOL EXTRA STRENGTH [Concomitant]
     Active Substance: ACETAMINOPHEN
  6. GRAVOL [Concomitant]
     Active Substance: DIMENHYDRINATE
     Indication: Chronic obstructive pulmonary disease
  7. VITAMIN B12 [Concomitant]
     Active Substance: CYANOCOBALAMIN
     Dosage: UNK, MONTHLY/ 1 EVERY 1 MONTH
  8. CHOLECALCIFEROL [Concomitant]
     Active Substance: CHOLECALCIFEROL
  9. VITAMINS [Concomitant]
     Active Substance: VITAMINS
  10. VITAMINS NOS [Concomitant]
     Active Substance: VITAMINS

REACTIONS (17)
  - Anal fistula [Recovered/Resolved]
  - Constipation [Recovered/Resolved]
  - Anal abscess [Recovered/Resolved]
  - Pyrexia [Recovered/Resolved]
  - Tremor [Recovered/Resolved]
  - Asthenia [Recovered/Resolved]
  - Insomnia [Recovered/Resolved]
  - Headache [Recovered/Resolved]
  - Dizziness [Recovered/Resolved]
  - Fatigue [Recovered/Resolved]
  - Drug ineffective [Recovered/Resolved]
  - Intentional dose omission [Recovered/Resolved]
  - Intentional product use issue [Recovered/Resolved]
  - Nerve injury [Not Recovered/Not Resolved]
  - Paraesthesia [Not Recovered/Not Resolved]
  - Product expiration date issue [Unknown]
  - Inappropriate schedule of product administration [Recovered/Resolved]

NARRATIVE: CASE EVENT DATE: 20230516
